FAERS Safety Report 7231218-0 (Version None)
Quarter: 2011Q1

REPORT INFORMATION
  Report Type: 
  Country: None (occurrence: None)
  Receive Date: 20110118
  Receipt Date: 20110113
  Transmission Date: 20110831
  Serious: Yes (Hospitalization, Other)
  Sender: FDA-Public Use
  Company Number: B0681402A

PATIENT
  Sex: Female
  Weight: 61.4 kg

DRUGS (1)
  1. LAMICTAL [Suspect]
     Indication: EPILEPSY
     Dosage: 50MG TWICE PER DAY
     Route: 048
     Dates: start: 20100910

REACTIONS (18)
  - PRURITUS [None]
  - ERYTHEMA [None]
  - EYE IRRITATION [None]
  - PETIT MAL EPILEPSY [None]
  - BLEPHAROSPASM [None]
  - ACNE [None]
  - GINGIVAL PAIN [None]
  - INSOMNIA [None]
  - AMNESIA [None]
  - CONCUSSION [None]
  - UPPER AIRWAY OBSTRUCTION [None]
  - SYNCOPE [None]
  - DIARRHOEA [None]
  - ALOPECIA [None]
  - EPILEPSY [None]
  - GINGIVAL SWELLING [None]
  - ABDOMINAL DISCOMFORT [None]
  - RASH [None]
